FAERS Safety Report 9279321 (Version 4)
Quarter: 2013Q3

REPORT INFORMATION
  Report Type: Spontaneous
  Country: US (occurrence: US)
  Receive Date: 20130508
  Receipt Date: 20130726
  Transmission Date: 20140515
  Serious: Yes (Hospitalization, Other)
  Sender: FDA-Public Use
  Company Number: US-BIOGENIDEC-2013BI040478

PATIENT
  Age: 61 Year
  Sex: Female

DRUGS (2)
  1. AVONEX [Suspect]
     Indication: PRODUCT USED FOR UNKNOWN INDICATION
     Route: 030
     Dates: start: 20010130, end: 20090715
  2. AVONEX [Suspect]
     Indication: PRODUCT USED FOR UNKNOWN INDICATION
     Route: 030
     Dates: start: 20100727, end: 20130422

REACTIONS (18)
  - Decreased immune responsiveness [Unknown]
  - Sepsis [Unknown]
  - Septic shock [Recovered/Resolved]
  - Incoherent [Recovered/Resolved]
  - Blood test abnormal [Unknown]
  - Blood magnesium decreased [Unknown]
  - Blood potassium decreased [Unknown]
  - Blood iron decreased [Unknown]
  - Vitamin B12 decreased [Unknown]
  - Neutropenia [Unknown]
  - Clostridium difficile colitis [Recovered/Resolved]
  - Large intestinal ulcer [Unknown]
  - Diverticulitis [Unknown]
  - Hemiparesis [Unknown]
  - Cognitive disorder [Unknown]
  - Balance disorder [Not Recovered/Not Resolved]
  - Asthenia [Recovered/Resolved]
  - White blood cell count decreased [Unknown]
